FAERS Safety Report 16861812 (Version 1)
Quarter: 2019Q3

REPORT INFORMATION
  Report Type: Spontaneous
  Country: IT (occurrence: IT)
  Receive Date: 20190927
  Receipt Date: 20190927
  Transmission Date: 20191005
  Serious: Yes (Other)
  Sender: FDA-Public Use
  Company Number: IT-009507513-1909ITA006250

PATIENT
  Age: 72 Year
  Sex: Female

DRUGS (2)
  1. TYGACIL [Concomitant]
     Active Substance: TIGECYCLINE
     Dosage: 50 MILLIGRAM, 1 DAY
  2. CANCIDAS [Suspect]
     Active Substance: CASPOFUNGIN ACETATE
     Indication: ENTEROBACTER INFECTION
     Dosage: 50 MILLIGRAM, QD
     Route: 042

REACTIONS (1)
  - Drug ineffective [Unknown]
